FAERS Safety Report 19377041 (Version 1)
Quarter: 2021Q2

REPORT INFORMATION
  Report Type: Spontaneous
  Country: US (occurrence: US)
  Receive Date: 20210604
  Receipt Date: 20210604
  Transmission Date: 20210717
  Serious: No
  Sender: FDA-Public Use
  Company Number: US-PERRIGO-21US003612

PATIENT
  Sex: Female

DRUGS (1)
  1. DICLOFENAC SODIUM. [Suspect]
     Active Substance: DICLOFENAC SODIUM
     Indication: PAIN
     Dosage: UNKNOWN , UNKNONW
     Route: 061
     Dates: start: 202103

REACTIONS (2)
  - Product administered at inappropriate site [Unknown]
  - Drug ineffective [Unknown]

NARRATIVE: CASE EVENT DATE: 202103
